FAERS Safety Report 5969860-7 (Version None)
Quarter: 2008Q4

REPORT INFORMATION
  Report Type: 
  Country: None (occurrence: None)
  Receive Date: 20081126
  Receipt Date: 20080930
  Transmission Date: 20090506
  Serious: No
  Sender: FDA-Public Use
  Company Number: US-ABBOTT-08P-163-0479007-00

PATIENT
  Sex: Male
  Weight: 79.45 kg

DRUGS (6)
  1. SIMCOR [Suspect]
     Indication: BLOOD CHOLESTEROL INCREASED
     Dosage: 1000/20MG
     Route: 048
     Dates: start: 20080910
  2. DIOVAN HCT [Concomitant]
     Indication: HYPERTENSION
     Route: 048
  3. CLOPIDOGREL [Concomitant]
     Indication: CARDIAC OPERATION
     Route: 048
     Dates: start: 20080801
  4. ASPIRIN [Concomitant]
     Indication: PROPHYLAXIS
     Dates: start: 20080910
  5. ASPIRIN [Concomitant]
     Indication: FLUSHING
  6. F0RTEX [Concomitant]
     Indication: DRUG USE FOR UNKNOWN INDICATION

REACTIONS (3)
  - HOT FLUSH [None]
  - PARAESTHESIA [None]
  - PRURITUS [None]
